FAERS Safety Report 9722827 (Version 1)
Quarter: 2013Q4

REPORT INFORMATION
  Report Type: Spontaneous
  Country: US (occurrence: None)
  Receive Date: 20131126
  Receipt Date: 20131126
  Transmission Date: 20140711
  Serious: Yes (Other)
  Sender: FDA-Public Use
  Company Number: 2013EXPUS00034

PATIENT
  Age: 33 Year
  Sex: 0

DRUGS (1)
  1. EXPAREL [Suspect]
     Indication: POSTOPERATIVE ANALGESIA
     Dosage: DILUTED TO A TOTAL OF 70CC^S 1X
     Dates: start: 20131029, end: 20131029

REACTIONS (1)
  - Grand mal convulsion [None]
